FAERS Safety Report 5899648-7 (Version None)
Quarter: 2008Q3

REPORT INFORMATION
  Report Type: 
  Country: None (occurrence: None)
  Receive Date: 20080926
  Receipt Date: 20080922
  Transmission Date: 20090109
  Serious: Yes (Hospitalization)
  Sender: FDA-Public Use
  Company Number: FRWYE494221MAR06

PATIENT
  Age: 68 Year
  Sex: Male

DRUGS (2)
  1. RAPAMUNE [Suspect]
     Indication: PROPHYLAXIS AGAINST TRANSPLANT REJECTION
     Route: 048
     Dates: start: 20041026
  2. RAPAMUNE [Suspect]
     Dosage: 2 MG TOTAL DAILY
     Route: 048

REACTIONS (1)
  - RENAL FAILURE ACUTE [None]
